FAERS Safety Report 4980021-0 (Version None)
Quarter: 2006Q2

REPORT INFORMATION
  Report Type: 
  Country: None (occurrence: None)
  Receive Date: 20060421
  Receipt Date: 20050718
  Transmission Date: 20061013
  Serious: Yes (Hospitalization)
  Sender: FDA-Public Use
  Company Number: US-MERCK-0507USA02903

PATIENT
  Age: 65 Year
  Sex: Female
  Weight: 57 kg

DRUGS (17)
  1. VIOXX [Suspect]
     Indication: ARTHRITIS
     Route: 048
     Dates: start: 20020214, end: 20030905
  2. VIOXX [Suspect]
     Route: 048
     Dates: start: 20020214, end: 20040729
  3. PLAVIX [Concomitant]
     Route: 048
  4. NITROGLYCERIN [Concomitant]
     Route: 065
  5. ASPIRIN [Concomitant]
     Route: 048
  6. ZOCOR [Suspect]
     Route: 065
  7. IMDUR [Concomitant]
     Route: 048
  8. IMDUR [Concomitant]
     Route: 048
  9. PLETAL [Concomitant]
     Route: 065
  10. PROPRANOLOL HYDROCHLORIDE [Concomitant]
     Route: 065
     Dates: end: 20020201
  11. PROPRANOLOL HYDROCHLORIDE [Concomitant]
     Route: 065
  12. ELAVIL [Concomitant]
     Route: 048
  13. PREMARIN [Concomitant]
     Route: 048
  14. AMITRIPTYLINE HYDROCHLORIDE [Concomitant]
     Route: 048
  15. NITROQUICK [Concomitant]
     Route: 060
  16. LEVOXYL [Concomitant]
     Route: 048
  17. TYLOX [Concomitant]
     Indication: PAIN
     Route: 048

REACTIONS (22)
  - AORTIC VALVE INCOMPETENCE [None]
  - ARTERIAL OCCLUSIVE DISEASE [None]
  - BACK PAIN [None]
  - CARDIAC FAILURE CONGESTIVE [None]
  - CEREBROVASCULAR ACCIDENT [None]
  - CERUMEN IMPACTION [None]
  - CHEST DISCOMFORT [None]
  - CHEST PAIN [None]
  - CHRONIC OBSTRUCTIVE PULMONARY DISEASE [None]
  - CONFUSIONAL STATE [None]
  - CORONARY ARTERY DISEASE [None]
  - DYSPNOEA [None]
  - EMPHYSEMA [None]
  - HYPERLIPIDAEMIA [None]
  - HYPERTENSION [None]
  - INTERMITTENT CLAUDICATION [None]
  - MYALGIA [None]
  - MYOCARDIAL INFARCTION [None]
  - NERVOUSNESS [None]
  - NON-CARDIAC CHEST PAIN [None]
  - PAIN [None]
  - UPPER RESPIRATORY TRACT INFECTION [None]
